FAERS Safety Report 9347399 (Version 1)
Quarter: 2013Q2

REPORT INFORMATION
  Report Type: Spontaneous
  Country: US (occurrence: US)
  Receive Date: 20130613
  Receipt Date: 20130613
  Transmission Date: 20140414
  Serious: Yes (Hospitalization)
  Sender: FDA-Public Use
  Company Number: US-GILEAD-2013-0076216

PATIENT
  Age: 36 Year
  Sex: Female

DRUGS (5)
  1. LETAIRIS [Suspect]
     Indication: PULMONARY ARTERIAL HYPERTENSION
     Dosage: 10 MG, QD
  2. LETAIRIS [Suspect]
     Dosage: 5 MG, QD
     Dates: start: 20120220
  3. LETAIRIS [Suspect]
     Dosage: 5 MG, QD
  4. REVATIO [Concomitant]
  5. PROGRAF [Concomitant]

REACTIONS (3)
  - Central venous catheterisation [Unknown]
  - Eyelid pain [Recovered/Resolved]
  - Swelling face [Recovered/Resolved]
